FAERS Safety Report 23246836 (Version 1)
Quarter: 2023Q4

REPORT INFORMATION
  Report Type: Spontaneous
  Country: US (occurrence: US)
  Receive Date: 20231130
  Receipt Date: 20231130
  Transmission Date: 20240110
  Serious: No
  Sender: FDA-Public Use
  Company Number: US-TAKEDA-2023TUS113892

PATIENT
  Age: 11 Year
  Weight: 39 kg

DRUGS (1)
  1. GAMMAGARD LIQUID [Suspect]
     Active Substance: HUMAN IMMUNOGLOBULIN G
     Indication: Product used for unknown indication
     Dosage: 15 GRAM, Q4WEEKS
     Route: 065

REACTIONS (6)
  - Drug level decreased [Unknown]
  - Neck pain [Unknown]
  - Cough [Unknown]
  - Back pain [Unknown]
  - Pyrexia [Unknown]
  - Incorrect drug administration rate [Unknown]
